FAERS Safety Report 26049995 (Version 1)
Quarter: 2025Q4

REPORT INFORMATION
  Report Type: Spontaneous
  Country: US (occurrence: US)
  Receive Date: 20251116
  Receipt Date: 20251116
  Transmission Date: 20260117
  Serious: No
  Sender: AMGEN
  Company Number: US-AMGEN-USASP2025221920

PATIENT
  Sex: Male

DRUGS (2)
  1. XGEVA [Suspect]
     Active Substance: DENOSUMAB
     Indication: Prostate cancer
     Dosage: UNK
     Route: 065
     Dates: start: 20231113
  2. XGEVA [Suspect]
     Active Substance: DENOSUMAB
     Indication: Plasma cell myeloma

REACTIONS (3)
  - Wheezing [Unknown]
  - Chest discomfort [Unknown]
  - Dyspnoea [Unknown]
